FAERS Safety Report 21857964 (Version 1)
Quarter: 2023Q1

REPORT INFORMATION
  Report Type: Spontaneous
  Country: DE (occurrence: DE)
  Receive Date: 20230113
  Receipt Date: 20230113
  Transmission Date: 20230418
  Serious: Yes (Hospitalization, Congenital Anomaly, Other)
  Sender: FDA-Public Use
  Company Number: None

PATIENT
  Age: 40 Week
  Sex: Male
  Weight: 3.07 kg

DRUGS (3)
  1. LEVETIRACETAM [Suspect]
     Active Substance: LEVETIRACETAM
     Indication: Epilepsy
     Dosage: 300 MG, QD (DOSAGE INCREASED FROM WEEK 14+4)
     Route: 064
     Dates: start: 20201005, end: 20210716
  2. LEVETIRACETAM [Suspect]
     Active Substance: LEVETIRACETAM
     Dosage: 200 MILLIGRAM, ONCE DAILY (QD)
     Route: 064
     Dates: start: 20201005, end: 20210716
  3. DIETARY SUPPLEMENT\MINERALS\VITAMINS [Suspect]
     Active Substance: DIETARY SUPPLEMENT\MINERALS\VITAMINS
     Indication: Prophylaxis of neural tube defect
     Dosage: UNK

REACTIONS (4)
  - Atrial septal defect [Recovered/Resolved with Sequelae]
  - Ventricular septal defect [Recovered/Resolved with Sequelae]
  - Small for dates baby [Unknown]
  - Foetal exposure during pregnancy [Unknown]
